FAERS Safety Report 23353079 (Version 1)
Quarter: 2023Q4

REPORT INFORMATION
  Report Type: Spontaneous
  Country: US (occurrence: US)
  Receive Date: 20231230
  Receipt Date: 20231230
  Transmission Date: 20240109
  Serious: No
  Sender: FDA-Public Use
  Company Number: US-GSKCCFUS-Case-01891204_AE-105536

PATIENT
  Age: 52 Year
  Sex: Female

DRUGS (1)
  1. NUCALA [Interacting]
     Active Substance: MEPOLIZUMAB
     Indication: Asthma
     Dosage: 100 MG, MO

REACTIONS (2)
  - Drug interaction [Unknown]
  - Product prescribing error [Unknown]
